FAERS Safety Report 10064728 (Version 1)
Quarter: 2014Q2

REPORT INFORMATION
  Report Type: Spontaneous
  Country: US (occurrence: US)
  Receive Date: 20140408
  Receipt Date: 20140408
  Transmission Date: 20141212
  Serious: Yes (Life-Threatening)
  Sender: FDA-Public Use
  Company Number: US-BANPHARM-20142508

PATIENT
  Age: 19 Year
  Sex: Male

DRUGS (1)
  1. IBUPROFEN UNKNOWN PRODUCT [Suspect]
     Dosage: 200 MG, 450 DF,
     Route: 048

REACTIONS (6)
  - Coma [Recovered/Resolved]
  - Metabolic acidosis [Recovered/Resolved]
  - Polyuria [Recovered/Resolved]
  - Gastric haemorrhage [Unknown]
  - Occult blood positive [Unknown]
  - Overdose [Unknown]
